FAERS Safety Report 8537008-0 (Version None)
Quarter: 2012Q3

REPORT INFORMATION
  Report Type: 
  Country: None (occurrence: None)
  Receive Date: 20120713
  Receipt Date: 20120702
  Transmission Date: 20120928
  Serious: Yes (Other)
  Sender: FDA-Public Use
  Company Number: AUR-APL-2012-01664

PATIENT
  Age: 38 Year
  Sex: Male
  Weight: 129.5 kg

DRUGS (2)
  1. FLUOXETINE [Concomitant]
  2. MIRTAZAPINE [Suspect]
     Indication: ANXIETY
     Dosage: (15 MG),ORAL, (30 MG),ORAL
     Route: 048
     Dates: start: 20120104, end: 20120116

REACTIONS (8)
  - PSYCHOTIC DISORDER [None]
  - DEPRESSED MOOD [None]
  - COGNITIVE DISORDER [None]
  - PARANOIA [None]
  - IRRITABILITY [None]
  - CONFUSIONAL STATE [None]
  - SUICIDAL IDEATION [None]
  - ANXIETY [None]
